FAERS Safety Report 6474758-4 (Version None)
Quarter: 2009Q4

REPORT INFORMATION
  Report Type: 
  Country: None (occurrence: None)
  Receive Date: 20091204
  Receipt Date: 20091123
  Transmission Date: 20100525
  Serious: Yes (Other)
  Sender: FDA-Public Use
  Company Number: IT-ELI_LILLY_AND_COMPANY-IT200810004064

PATIENT
  Sex: Male
  Weight: 120 kg

DRUGS (4)
  1. BYETTA [Suspect]
     Indication: TYPE 2 DIABETES MELLITUS
     Dosage: 10 UG, UNKNOWN
     Route: 058
     Dates: start: 20080601, end: 20081013
  2. METFORMIN HCL [Concomitant]
     Dosage: 3000 MG, UNKNOWN
     Route: 065
  3. ROSUVASTATIN CALCIUM [Concomitant]
     Dosage: 10 MG, UNKNOWN
     Route: 065
  4. PRITOR [Concomitant]
     Dosage: 80 MG, UNKNOWN
     Route: 065

REACTIONS (2)
  - BLOOD AMYLASE INCREASED [None]
  - WEIGHT DECREASED [None]
